FAERS Safety Report 4950006-9 (Version None)
Quarter: 2006Q1

REPORT INFORMATION
  Report Type: 
  Country: None (occurrence: None)
  Receive Date: 20060315
  Receipt Date: 20060302
  Transmission Date: 20060701
  Serious: Yes (Hospitalization)
  Sender: FDA-Public Use
  Company Number: 2006032775

PATIENT
  Age: 66 Year
  Sex: Male
  Weight: 69 kg

DRUGS (4)
  1. SUTENT [Suspect]
     Indication: METASTATIC RENAL CELL CARCINOMA
     Dosage: 50 MG (50 MG, INTERVAL: DAILY), ORAL
     Route: 048
     Dates: start: 20060118
  2. SECOTEX (TAMSULOSIN HYDROCHLORIDE) [Concomitant]
  3. DEXAMETHASONE TAB [Concomitant]
  4. CELECOXIB [Concomitant]

REACTIONS (5)
  - ASTHENIA [None]
  - CONFUSIONAL STATE [None]
  - DISORIENTATION [None]
  - FIBRIN D DIMER INCREASED [None]
  - LEUKOCYTOCLASTIC VASCULITIS [None]
